FAERS Safety Report 6911161-4 (Version None)
Quarter: 2010Q3

REPORT INFORMATION
  Report Type: 
  Country: None (occurrence: None)
  Receive Date: 20100806
  Receipt Date: 20100309
  Transmission Date: 20110219
  Serious: Yes (Life-Threatening, Hospitalization)
  Sender: FDA-Public Use
  Company Number: JP-MERCK-1003USA01397

PATIENT
  Age: 79 Year
  Sex: Female

DRUGS (10)
  1. DECADRON [Suspect]
     Indication: MULTIPLE MYELOMA
     Route: 042
     Dates: start: 20080317, end: 20080317
  2. DECADRON [Suspect]
     Route: 042
     Dates: start: 20080320, end: 20080320
  3. DECADRON [Suspect]
     Route: 042
     Dates: start: 20080407, end: 20080407
  4. DECADRON [Suspect]
     Route: 042
     Dates: start: 20080410, end: 20080410
  5. DECADRON [Suspect]
     Route: 065
  6. DECADRON [Suspect]
     Route: 065
     Dates: start: 20050101
  7. VELCADE [Suspect]
     Indication: MULTIPLE MYELOMA
     Route: 042
     Dates: start: 20080317, end: 20080317
  8. VELCADE [Suspect]
     Route: 042
     Dates: start: 20080320, end: 20080320
  9. VELCADE [Suspect]
     Route: 042
     Dates: start: 20080407, end: 20080407
  10. VELCADE [Suspect]
     Route: 042
     Dates: start: 20080410, end: 20080410

REACTIONS (2)
  - ANGINA PECTORIS [None]
  - MYOCARDIAL INFARCTION [None]
